FAERS Safety Report 7142608-9 (Version None)
Quarter: 2010Q4

REPORT INFORMATION
  Report Type: 
  Country: None (occurrence: None)
  Receive Date: 20101112
  Receipt Date: 20101007
  Transmission Date: 20110411
  Serious: No
  Sender: FDA-Public Use
  Company Number: 1000016725

PATIENT
  Age: 58 Year
  Sex: Female

DRUGS (5)
  1. SAVELLA [Suspect]
     Indication: FIBROMYALGIA
     Dosage: 12.5 MG (12.5 MG, 1 IN 1 D), ORAL
     Route: 048
     Dates: start: 20100916
  2. TYLENOL -CODEINE (ACETAMINOPHEN, CODEINE) [Concomitant]
  3. NORVASC [Concomitant]
  4. CABIDOPA-LEVODOPA (CARBIDOPA, LEVODOPA) [Concomitant]
  5. TOPAMAX [Concomitant]

REACTIONS (1)
  - HEPATIC ENZYME INCREASED [None]
